FAERS Safety Report 10227615 (Version 1)
Quarter: 2014Q2

REPORT INFORMATION
  Report Type: Spontaneous
  Country: US (occurrence: None)
  Receive Date: 20140606
  Receipt Date: 20140606
  Transmission Date: 20141212
  Serious: Yes (Hospitalization, Other)
  Sender: FDA-Public Use
  Company Number: UNT-2014-001326

PATIENT
  Age: 67 Year
  Sex: Female

DRUGS (1)
  1. REMODULIN [Suspect]
     Indication: PULMONARY ARTERIAL HYPERTENSION
     Dosage: 0.080 UG/KG/MIN
     Route: 058
     Dates: start: 20081230

REACTIONS (3)
  - Fall [None]
  - Cerebral haemorrhage [None]
  - Concussion [None]
